FAERS Safety Report 10639800 (Version 1)
Quarter: 2014Q4

REPORT INFORMATION
  Report Type: Spontaneous
  Country: US (occurrence: None)
  Receive Date: 20141205
  Receipt Date: 20141205
  Transmission Date: 20150529
  Serious: Yes (Disabling)
  Sender: FDA-Public Use
  Company Number: None

PATIENT
  Age: 25 Year
  Sex: Male
  Weight: 70.31 kg

DRUGS (1)
  1. CIPRO [Suspect]
     Active Substance: CIPROFLOXACIN HYDROCHLORIDE
     Indication: URINARY TRACT INFECTION
     Dosage: 1 PILL, TWICE DAILY, TAKEN BY MOUTH
     Route: 048
     Dates: start: 20140928, end: 20141204

REACTIONS (6)
  - Insomnia [None]
  - Burning sensation [None]
  - Tendonitis [None]
  - Anxiety [None]
  - Hallucination, auditory [None]
  - Sensory loss [None]

NARRATIVE: CASE EVENT DATE: 20141003
